FAERS Safety Report 8343719-2 (Version None)
Quarter: 2012Q2

REPORT INFORMATION
  Report Type: 
  Country: None (occurrence: None)
  Receive Date: 20120508
  Receipt Date: 20120508
  Transmission Date: 20120825
  Serious: Yes (Hospitalization, Disabling, Other)
  Sender: FDA-Public Use
  Company Number: None

PATIENT
  Age: 33 Year
  Sex: Female
  Weight: 77.11 kg

DRUGS (1)
  1. AMITIZA [Suspect]
     Indication: IRRITABLE BOWEL SYNDROME
     Route: 048
     Dates: start: 20080209, end: 20111111

REACTIONS (13)
  - CHEST PAIN [None]
  - LOSS OF CONSCIOUSNESS [None]
  - CLUBBING [None]
  - HAEMORRHAGE [None]
  - RECTAL FISSURE [None]
  - WEIGHT INCREASED [None]
  - NAUSEA [None]
  - DIPLOPIA [None]
  - ASTHMA [None]
  - COUGH [None]
  - RECTAL HAEMORRHAGE [None]
  - ANAEMIA [None]
  - HAEMORRHOIDS [None]
